FAERS Safety Report 15464853 (Version 1)
Quarter: 2018Q4

REPORT INFORMATION
  Report Type: Spontaneous
  Country: GB (occurrence: GB)
  Receive Date: 20181004
  Receipt Date: 20181004
  Transmission Date: 20190204
  Serious: Yes (Hospitalization)
  Sender: FDA-Public Use
  Company Number: GB-MYLANLABS-2018M1073121

PATIENT
  Age: 19 Year
  Sex: Female

DRUGS (1)
  1. CITALOPRAM [Suspect]
     Active Substance: CITALOPRAM HYDROBROMIDE
     Indication: DEPRESSION
     Dosage: 20 MG, TOTAL
     Route: 048
     Dates: start: 20180501

REACTIONS (1)
  - Muscle twitching [Not Recovered/Not Resolved]

NARRATIVE: CASE EVENT DATE: 20180501
